FAERS Safety Report 16449072 (Version 2)
Quarter: 2021Q3

REPORT INFORMATION
  Report Type: Spontaneous
  Country: US (occurrence: US)
  Receive Date: 20190619
  Receipt Date: 20210817
  Transmission Date: 20211014
  Serious: Yes (Other)
  Sender: FDA-Public Use
  Company Number: US-ELI_LILLY_AND_COMPANY-US201906008888

PATIENT
  Sex: Female

DRUGS (16)
  1. HUMULIN R U?500 [Suspect]
     Active Substance: INSULIN HUMAN
     Dosage: 145 U, DAILY (IN AFTERNOON)
     Route: 065
     Dates: start: 2018
  2. HUMULIN R U?500 [Suspect]
     Active Substance: INSULIN HUMAN
     Dosage: 145 U, DAILY (IN AFTERNOON)
     Route: 065
  3. HUMULIN R U?500 [Suspect]
     Active Substance: INSULIN HUMAN
     Dosage: 15 U, DAILY (NIGHT)
     Route: 065
  4. HUMULIN R U?500 [Suspect]
     Active Substance: INSULIN HUMAN
     Dosage: 155 U, EACH MORNING
     Route: 065
  5. HUMULIN R U?500 [Suspect]
     Active Substance: INSULIN HUMAN
     Dosage: 155 U, EACH MORNING
     Route: 065
  6. HUMULIN R U?500 [Suspect]
     Active Substance: INSULIN HUMAN
     Dosage: 145 U, DAILY (IN AFTERNOON)
     Route: 065
     Dates: start: 2018
  7. HUMULIN R U?500 [Suspect]
     Active Substance: INSULIN HUMAN
     Dosage: 15 U, DAILY (NIGHT)
     Route: 065
     Dates: start: 2018
  8. HUMULIN R U?500 [Suspect]
     Active Substance: INSULIN HUMAN
     Dosage: 15 U, DAILY (NIGHT)
     Route: 065
     Dates: start: 2018
  9. HUMULIN R U?500 [Suspect]
     Active Substance: INSULIN HUMAN
     Dosage: 145 U, DAILY (IN AFTERNOON)
     Route: 065
  10. HUMULIN R U?500 [Suspect]
     Active Substance: INSULIN HUMAN
     Dosage: 15 U, DAILY (NIGHT)
     Route: 065
  11. HUMULIN R U?500 [Suspect]
     Active Substance: INSULIN HUMAN
     Indication: TYPE 2 DIABETES MELLITUS
     Dosage: 155 U, EACH MORNING
     Route: 065
     Dates: start: 2018
  12. HUMULIN R U?500 [Suspect]
     Active Substance: INSULIN HUMAN
     Dosage: 15 U, DAILY (NIGHT)
     Route: 065
  13. HUMULIN R [Suspect]
     Active Substance: INSULIN HUMAN
     Indication: PRODUCT USED FOR UNKNOWN INDICATION
     Dosage: UNK, UNKNOWN
     Route: 065
     Dates: start: 2009
  14. HUMULIN R U?500 [Suspect]
     Active Substance: INSULIN HUMAN
     Indication: TYPE 2 DIABETES MELLITUS
     Dosage: 155 U, EACH MORNING
     Route: 065
     Dates: start: 2018
  15. HUMULIN R U?500 [Suspect]
     Active Substance: INSULIN HUMAN
     Dosage: 155 U, EACH MORNING
     Route: 065
  16. HUMULIN R U?500 [Suspect]
     Active Substance: INSULIN HUMAN
     Dosage: 145 U, DAILY (IN AFTERNOON)
     Route: 065

REACTIONS (12)
  - Visual impairment [Unknown]
  - Retinopathy [Unknown]
  - Injection site bruising [Unknown]
  - Injection site pain [Unknown]
  - Product dose omission issue [Unknown]
  - Limb discomfort [Unknown]
  - Incorrect dose administered [Unknown]
  - Blood glucose increased [Unknown]
  - Foot fracture [Unknown]
  - Insulin resistance [Not Recovered/Not Resolved]
  - Gait disturbance [Unknown]
  - Ankle fracture [Unknown]
